FAERS Safety Report 18810374 (Version 1)
Quarter: 2021Q1

REPORT INFORMATION
  Report Type: Report from Study
  Country: US (occurrence: US)
  Receive Date: 20210129
  Receipt Date: 20210129
  Transmission Date: 20210419
  Serious: Yes (Death)
  Sender: FDA-Public Use
  Company Number: US-FERAPHARMA-2021-US-001732

PATIENT
  Age: 55 Year
  Sex: Male

DRUGS (1)
  1. DECADRON [Suspect]
     Active Substance: DEXAMETHASONE
     Indication: PRODUCT USED FOR UNKNOWN INDICATION
     Dosage: 4?8 MG
     Route: 065
     Dates: start: 20200930, end: 20201015

REACTIONS (1)
  - Aspergillus infection [Fatal]

NARRATIVE: CASE EVENT DATE: 20201013
